FAERS Safety Report 10009951 (Version 1)
Quarter: 2014Q1

REPORT INFORMATION
  Report Type: Spontaneous
  Country: US (occurrence: US)
  Receive Date: 20140312
  Receipt Date: 20140312
  Transmission Date: 20141002
  Serious: No
  Sender: FDA-Public Use
  Company Number: US-INCYTE CORPORATION-2013IN000716

PATIENT
  Age: 69 Year
  Sex: Female

DRUGS (6)
  1. JAKAFI [Suspect]
     Indication: POLYCYTHAEMIA VERA
     Dosage: 10 MG, BID
     Route: 048
     Dates: end: 201303
  2. JAKAFI [Suspect]
     Dosage: 20 MG, BID
     Route: 048
     Dates: start: 201303
  3. BOSWELLIA [Concomitant]
  4. DIOVAN [Concomitant]
  5. COREG [Concomitant]
  6. ARMOUR THYROID [Concomitant]

REACTIONS (3)
  - Fatigue [Unknown]
  - Nausea [Unknown]
  - Dizziness [Unknown]
